FAERS Safety Report 22209077 (Version 1)
Quarter: 2023Q2

REPORT INFORMATION
  Report Type: Other
  Country: US (occurrence: US)
  Receive Date: 20230413
  Receipt Date: 20230413
  Transmission Date: 20230721
  Serious: No
  Sender: FDA-Public Use
  Company Number: US-TRAVERE-2022TVT00595

PATIENT
  Age: 3 Year
  Sex: Female

DRUGS (4)
  1. CHOLIC ACID [Suspect]
     Active Substance: CHOLIC ACID
     Indication: Cerebrohepatorenal syndrome
     Route: 048
     Dates: start: 20200515
  2. CHOLIC ACID [Suspect]
     Active Substance: CHOLIC ACID
     Route: 048
  3. VITAMIN K [Concomitant]
     Active Substance: PHYTONADIONE
  4. ZYRTEC [Concomitant]
     Active Substance: CETIRIZINE HYDROCHLORIDE

REACTIONS (2)
  - Prothrombin level abnormal [Unknown]
  - International normalised ratio abnormal [Unknown]
